FAERS Safety Report 4677222-8 (Version None)
Quarter: 2005Q2

REPORT INFORMATION
  Report Type: 
  Country: None (occurrence: None)
  Receive Date: 20050526
  Receipt Date: 20050517
  Transmission Date: 20051028
  Serious: Yes (Other)
  Sender: FDA-Public Use
  Company Number: 2005073601

PATIENT
  Age: 30 Year
  Sex: Female
  Weight: 54 kg

DRUGS (1)
  1. DEPO-CLINOVIR (MEDROXYPROGESTERONE ACETATE) [Suspect]
     Indication: CONTRACEPTION
     Dosage: UNKNOWN (FIRST INJECTION), UNKNOWN
     Route: 065
     Dates: start: 20050214, end: 20050214

REACTIONS (9)
  - ALOPECIA [None]
  - BLOOD PRESSURE INCREASED [None]
  - DIZZINESS [None]
  - FATIGUE [None]
  - HYPERHIDROSIS [None]
  - METRORRHAGIA [None]
  - PELVIC PAIN [None]
  - SKIN DISCOLOURATION [None]
  - TACHYCARDIA [None]
